FAERS Safety Report 12864647 (Version 8)
Quarter: 2017Q1

REPORT INFORMATION
  Report Type: Spontaneous
  Country: US (occurrence: US)
  Receive Date: 20161020
  Receipt Date: 20170317
  Transmission Date: 20170428
  Serious: Yes (Other)
  Sender: FDA-Public Use
  Company Number: PHEH2016US027082

PATIENT
  Age: 38 Year
  Sex: Female
  Weight: 67.57 kg

DRUGS (2)
  1. ZOFRAN [Suspect]
     Active Substance: ONDANSETRON HYDROCHLORIDE
     Indication: VOMITING IN PREGNANCY
     Dosage: 4 MG, PRN
     Route: 065
  2. ZOFRAN ODT [Suspect]
     Active Substance: ONDANSETRON HYDROCHLORIDE
     Indication: VOMITING IN PREGNANCY
     Dosage: 8 MG, QD
     Route: 048
     Dates: start: 20040429, end: 20040920

REACTIONS (20)
  - Haematuria [Unknown]
  - Sinusitis [Unknown]
  - Atrial fibrillation [Unknown]
  - Bronchial hyperreactivity [Unknown]
  - Nephrolithiasis [Unknown]
  - Maternal exposure during pregnancy [Unknown]
  - Amenorrhoea [Unknown]
  - Anxiety [Unknown]
  - Dyspnoea [Unknown]
  - Stress urinary incontinence [Unknown]
  - Onychomycosis [Unknown]
  - Dysuria [Unknown]
  - Pyuria [Unknown]
  - Urinary tract infection [Unknown]
  - Product use issue [Unknown]
  - Mitral valve incompetence [Unknown]
  - Tricuspid valve incompetence [Unknown]
  - Supraventricular tachycardia [Unknown]
  - Paroxysmal arrhythmia [Unknown]
  - Injury [Unknown]

NARRATIVE: CASE EVENT DATE: 20050826
